FAERS Safety Report 9337972 (Version 1)
Quarter: 2013Q2

REPORT INFORMATION
  Report Type: Report from Study
  Country: AR (occurrence: AR)
  Receive Date: 20130609
  Receipt Date: 20130609
  Transmission Date: 20140414
  Serious: Yes (Hospitalization)
  Sender: FDA-Public Use
  Company Number: PHHY2013AR057922

PATIENT
  Age: 32 Year
  Sex: Male

DRUGS (1)
  1. LAPENAX [Suspect]
     Indication: SCHIZOPHRENIA, PARANOID TYPE
     Dosage: 100 MG, UNK
     Route: 048
     Dates: start: 20130305, end: 20130421

REACTIONS (4)
  - Mental disorder [Recovering/Resolving]
  - Psychotic disorder [Recovering/Resolving]
  - Nervousness [Recovering/Resolving]
  - Paranoia [Recovering/Resolving]
